FAERS Safety Report 18702327 (Version 2)
Quarter: 2021Q1

REPORT INFORMATION
  Report Type: Spontaneous
  Country: US (occurrence: US)
  Receive Date: 20210105
  Receipt Date: 20210111
  Transmission Date: 20210419
  Serious: No
  Sender: FDA-Public Use
  Company Number: US-PFIZER INC-2020518599

PATIENT
  Age: 61 Year
  Sex: Female

DRUGS (4)
  1. ADVIL [Suspect]
     Active Substance: IBUPROFEN
     Indication: AGEUSIA
  2. ADVIL [Suspect]
     Active Substance: IBUPROFEN
     Indication: COUGH
     Dosage: UNK
  3. ADVIL [Suspect]
     Active Substance: IBUPROFEN
     Indication: PAIN
  4. ADVIL [Suspect]
     Active Substance: IBUPROFEN
     Indication: HEADACHE

REACTIONS (1)
  - Drug ineffective for unapproved indication [Unknown]
